FAERS Safety Report 8241840-0 (Version None)
Quarter: 2012Q1

REPORT INFORMATION
  Report Type: 
  Country: None (occurrence: None)
  Receive Date: 20120328
  Receipt Date: 20120316
  Transmission Date: 20120608
  Serious: Yes (Hospitalization)
  Sender: FDA-Public Use
  Company Number: BR-ELI_LILLY_AND_COMPANY-BR201203005114

PATIENT
  Age: 74 Year
  Sex: Male

DRUGS (4)
  1. METFORMIN HCL [Concomitant]
     Dosage: UNK, UNKNOWN
     Route: 065
  2. ENALAPRIL MALEATE [Concomitant]
     Dosage: UNK, UNKNOWN
     Route: 065
  3. FORTEO [Suspect]
     Indication: OSTEOPOROSIS
     Dosage: UNK, UNKNOWN
     Route: 058
  4. FUROSEMIDA                         /00032601/ [Concomitant]

REACTIONS (3)
  - PAIN [None]
  - HYPERCALCAEMIA [None]
  - LUMBAR VERTEBRAL FRACTURE [None]
